FAERS Safety Report 16840144 (Version 2)
Quarter: 2019Q3

REPORT INFORMATION
  Report Type: Spontaneous
  Country: US (occurrence: US)
  Receive Date: 20190923
  Receipt Date: 20190925
  Transmission Date: 20191005
  Serious: Yes (Other)
  Sender: FDA-Public Use
  Company Number: US-PFIZER INC-2019408760

PATIENT
  Age: 72 Year
  Sex: Female
  Weight: 72.57 kg

DRUGS (2)
  1. RELPAX [Suspect]
     Active Substance: ELETRIPTAN HYDROBROMIDE
     Indication: MIGRAINE
     Dosage: ONE 40 MG TABLET AS NEEDED, TAKE SECOND TABLET IF NECESSARY WITHIN 24 HOUR PERIOD
  2. RELPAX [Suspect]
     Active Substance: ELETRIPTAN HYDROBROMIDE
     Dosage: 40 MG (1 OR 2 TABLETS)
     Dates: start: 2019

REACTIONS (5)
  - Haematemesis [Unknown]
  - Abdominal pain [Unknown]
  - Nausea [Unknown]
  - Recalled product administered [Unknown]
  - Abdominal discomfort [Not Recovered/Not Resolved]

NARRATIVE: CASE EVENT DATE: 2019
